FAERS Safety Report 7767785-8 (Version None)
Quarter: 2011Q3

REPORT INFORMATION
  Report Type: 
  Country: None (occurrence: None)
  Receive Date: 20110919
  Receipt Date: 20110909
  Transmission Date: 20111222
  Serious: Yes (Death)
  Sender: FDA-Public Use
  Company Number: 1000023702

PATIENT
  Age: 55 Year
  Sex: Male

DRUGS (1)
  1. VIIBRYD [Suspect]
     Dosage: 1 IN 1 D
     Dates: start: 20110823

REACTIONS (1)
  - COMPLETED SUICIDE [None]
